FAERS Safety Report 4746103-3 (Version None)
Quarter: 2005Q3

REPORT INFORMATION
  Report Type: 
  Country: None (occurrence: None)
  Receive Date: 20050816
  Receipt Date: 20050110
  Transmission Date: 20060218
  Serious: Yes (Hospitalization)
  Sender: FDA-Public Use
  Company Number: FR-BRISTOL-MYERS SQUIBB COMPANY-12819447

PATIENT
  Age: 56 Year
  Sex: Male

DRUGS (2)
  1. CETUXIMAB [Suspect]
     Indication: COLORECTAL CANCER METASTATIC
     Route: 042
     Dates: start: 20041216
  2. IRINOTECAN [Suspect]
     Indication: COLORECTAL CANCER METASTATIC
     Dosage: INITIATED ON 30-JUL-04. CYCLE 7= 400 MG LAST ADMIN. ON 16-DEC-2004. (REDUCED TO 200MG/M2)
     Route: 042
     Dates: start: 20041216

REACTIONS (6)
  - FEBRILE NEUTROPENIA [None]
  - HAEMATOTOXICITY [None]
  - HAEMOGLOBIN DECREASED [None]
  - HYPERTHERMIA [None]
  - PLATELET COUNT DECREASED [None]
  - WHITE BLOOD CELL COUNT DECREASED [None]
